FAERS Safety Report 4635036-9 (Version None)
Quarter: 2005Q2

REPORT INFORMATION
  Report Type: 
  Country: None (occurrence: None)
  Receive Date: 20050411
  Receipt Date: 20050328
  Transmission Date: 20051028
  Serious: Yes (Other)
  Sender: FDA-Public Use
  Company Number: 2004116313

PATIENT
  Age: 70 Year
  Sex: Female

DRUGS (6)
  1. BEXTRA [Suspect]
     Indication: EPICONDYLITIS
     Dosage: 20 MG (20 MG, 1 IN 1 D), ORAL
     Route: 048
     Dates: start: 20040101, end: 20040819
  2. BEXTRA [Suspect]
     Indication: PAIN
     Dosage: 20 MG (20 MG, 1 IN 1 D), ORAL
     Route: 048
     Dates: start: 20040101, end: 20040819
  3. PYRIDOXINE HCL [Concomitant]
  4. B-KOMPLEX    LECIVA   (CALCIUM PANTOTHENATE, NICOTINAMIDE, PYRIDOXINE [Concomitant]
  5. MAGNESIUM (MAGNESIUM) [Concomitant]
  6. CENTRUM SILVER (ASCORBIC ACID, CALCIUM, MINERALS NOS, RETINOL, TOCOPHE [Concomitant]

REACTIONS (6)
  - ANXIETY [None]
  - CHEST PAIN [None]
  - DIZZINESS [None]
  - FEELING ABNORMAL [None]
  - HEART RATE INCREASED [None]
  - PALPITATIONS [None]
